FAERS Safety Report 13687103 (Version 9)
Quarter: 2022Q3

REPORT INFORMATION
  Report Type: Spontaneous
  Country: FR (occurrence: FR)
  Receive Date: 20170623
  Receipt Date: 20220922
  Transmission Date: 20221027
  Serious: Yes (Death, Congenital Anomaly, Other)
  Sender: FDA-Public Use
  Company Number: PHHY2017FR091196

PATIENT
  Sex: Female
  Weight: 2.27 kg

DRUGS (14)
  1. NEORAL [Suspect]
     Active Substance: CYCLOSPORINE
     Indication: Foetal exposure during pregnancy
     Dosage: MATERNAL DOSE: 200 MG, 2X/DAY (BID),  START DATE ON 20 FEB 2015 AND LAST DOSE ON 18 AUG 2015
     Route: 064
  2. SPIRONOLACTONE [Suspect]
     Active Substance: SPIRONOLACTONE
     Indication: Foetal exposure during pregnancy
     Dosage: MATERNAL DOSE: UNK, LAST DOSE ON 20 FEB 2015
     Route: 064
  3. SODIUM BICARBONATE [Suspect]
     Active Substance: SODIUM BICARBONATE
     Indication: Foetal exposure during pregnancy
     Dosage: MATERNAL DOSE: 2 G, QD (1 G, BID), START DATE ON 20 FEB 2015 AND LAST DOSE ON 18 AUG 2015
     Route: 064
  4. PROZAC [Suspect]
     Active Substance: FLUOXETINE HYDROCHLORIDE
     Indication: Foetal exposure during pregnancy
     Dosage: MATERNAL DOSE: 20 MG, ONCE DAILY (QD), STARTED ON 20 FEB 2015 AND LAST DOSE ON 18 AUG 2015
     Route: 064
  5. ASPIRIN DL-LYSINE [Suspect]
     Active Substance: ASPIRIN DL-LYSINE
     Indication: Foetal exposure during pregnancy
     Dosage: MATERNAL DOSE: 100 MG, QD, STOP DATE ON 18 AUG 2015
     Route: 064
  6. SPIRAMYCIN [Suspect]
     Active Substance: SPIRAMYCIN
     Indication: Foetal exposure during pregnancy
     Dosage: MATERNAL DOSE: UNK, START DATE ON 20 FEB 2015 AND LAST DOSE ON 18 AUG 2015
     Route: 064
  7. FERROUS SULFATE\FOLIC ACID\GASTRIC MUCIN [Suspect]
     Active Substance: FERROUS SULFATE\FOLIC ACID\GASTRIC MUCIN
     Indication: Foetal exposure during pregnancy
     Dosage: MATERNAL DOSE: 2 DF, QD, LAST DOSE ON 18 AUG 2015
     Route: 064
  8. INSULIN NOS [Suspect]
     Active Substance: INSULIN NOS
     Indication: Foetal exposure during pregnancy
     Dosage: MATERNAL DOSE: UNK,  START DATE ON 20 FEB 2015 AND LAST DOSE ON 18 AUG 2015
     Route: 064
  9. CHOLECALCIFEROL [Suspect]
     Active Substance: CHOLECALCIFEROL
     Indication: Foetal exposure during pregnancy
     Dosage: MATERNAL DOSE: 20000 IU, QMO (20000 IU, MONTHLY (QM) 666.6667 IU , FROM: 3RD TRIMESTER OF PREGNANCY)
     Route: 064
  10. PRIMPERAN [Suspect]
     Active Substance: METOCLOPRAMIDE HYDROCHLORIDE
     Indication: Foetal exposure during pregnancy
     Dosage: MATERNAL DOSE: 10 MG, 3X/DAY (TID)  STRENGTH:30 MG, START DATE 20 FEB 2015 AND LAST DOSE ON 18 AUG 2
     Route: 064
  11. RAMIPRIL [Suspect]
     Active Substance: RAMIPRIL
     Indication: Foetal exposure during pregnancy
     Dosage: MATERNAL DOSE: UNK, LAST DOSE ON 20 FEB 2015
     Route: 064
  12. IRBESARTAN [Suspect]
     Active Substance: IRBESARTAN
     Indication: Foetal exposure during pregnancy
     Dosage: MATERNAL DOSE: UNK, LAST DOSE ON 20 FEB 2015
     Route: 064
  13. EZETIMIBE\SIMVASTATIN [Suspect]
     Active Substance: EZETIMIBE\SIMVASTATIN
     Indication: Foetal exposure during pregnancy
     Dosage: MATERNAL DOSE: UNK, LAST DOSE ON 20 FEB 2015
     Route: 064
  14. ATARAX [Suspect]
     Active Substance: HYDROXYZINE HYDROCHLORIDE
     Indication: Foetal exposure during pregnancy
     Dosage: MATERNAL DOSE: 25 MG, QD (1/DAY), STARTED ON 20 FEB 2015 AND STOPPED ON 18 AUG 2015
     Route: 064

REACTIONS (7)
  - Multiple organ dysfunction syndrome [Fatal]
  - Disseminated intravascular coagulation [Fatal]
  - Congenital musculoskeletal disorder [Not Recovered/Not Resolved]
  - Dysmorphism [Not Recovered/Not Resolved]
  - Talipes [Not Recovered/Not Resolved]
  - Low birth weight baby [Unknown]
  - Foetal exposure during pregnancy [Unknown]

NARRATIVE: CASE EVENT DATE: 20150220
